FAERS Safety Report 9923088 (Version 1)
Quarter: 2014Q1

REPORT INFORMATION
  Report Type: Spontaneous
  Country: US (occurrence: US)
  Receive Date: 20140225
  Receipt Date: 20140225
  Transmission Date: 20141002
  Serious: No
  Sender: FDA-Public Use
  Company Number: US-AMGEN-USASP2013068902

PATIENT
  Age: 58 Year
  Sex: Female
  Weight: 90.7 kg

DRUGS (1)
  1. ENBREL [Suspect]
     Indication: PSORIATIC ARTHROPATHY
     Dosage: UNK
     Route: 065
     Dates: start: 2003

REACTIONS (3)
  - Drug ineffective [Recovered/Resolved]
  - Arthralgia [Unknown]
  - Injection site pain [Recovered/Resolved]
